FAERS Safety Report 8152189-9 (Version None)
Quarter: 2012Q1

REPORT INFORMATION
  Report Type: 
  Country: None (occurrence: None)
  Receive Date: 20120214
  Receipt Date: 20120201
  Transmission Date: 20120608
  Serious: Yes (Hospitalization)
  Sender: FDA-Public Use
  Company Number: JP-2012-10482

PATIENT
  Sex: Male

DRUGS (2)
  1. SAMSCA [Suspect]
     Dosage: 7.5 MG MILLIGRAM(S), QD, ORAL
     Route: 048
  2. WARFARIN SODIUM [Suspect]
     Dosage: ORAL
     Route: 048

REACTIONS (2)
  - BLOOD CREATINE PHOSPHOKINASE INCREASED [None]
  - HAEMORRHAGE [None]
